FAERS Safety Report 12423305 (Version 1)
Quarter: 2016Q2

REPORT INFORMATION
  Report Type: Spontaneous
  Country: US (occurrence: None)
  Receive Date: 20160531
  Receipt Date: 20160531
  Transmission Date: 20160815
  Serious: Yes (Disabling)
  Sender: FDA-Public Use
  Company Number: None

PATIENT
  Age: 58 Year
  Sex: Female
  Weight: 58.97 kg

DRUGS (2)
  1. MULTI VITAMIN [Concomitant]
     Active Substance: VITAMINS
  2. CIPROFLOXACIN HYDROCHLORIDE. [Suspect]
     Active Substance: CIPROFLOXACIN HYDROCHLORIDE
     Indication: EYE INFECTION
     Dosage: 28 DROP(S) EVERY 6 HOURS INTO THE EYE
     Route: 031
     Dates: start: 20111028, end: 20111104

REACTIONS (3)
  - Tendon disorder [None]
  - Tendon pain [None]
  - Tendonitis [None]

NARRATIVE: CASE EVENT DATE: 20151014
